FAERS Safety Report 10356105 (Version 2)
Quarter: 2014Q3

REPORT INFORMATION
  Report Type: Spontaneous
  Country: US (occurrence: US)
  Receive Date: 20140801
  Receipt Date: 20140903
  Transmission Date: 20150326
  Serious: Yes (Other)
  Sender: FDA-Public Use
  Company Number: US-BIOGENIDEC-2014BI075351

PATIENT
  Age: 57 Year
  Sex: Female

DRUGS (8)
  1. BISOPROLOL-HYDROCHLOROTHIAZIDE [Concomitant]
  2. VITAMIN C [Concomitant]
     Active Substance: ASCORBIC ACID
  3. TECFIDERA [Suspect]
     Active Substance: DIMETHYL FUMARATE
     Indication: MULTIPLE SCLEROSIS
     Route: 048
     Dates: start: 201308
  4. B12-ACTIVE [Concomitant]
  5. FOLIC ACID. [Concomitant]
     Active Substance: FOLIC ACID
  6. KEPPRA [Concomitant]
     Active Substance: LEVETIRACETAM
  7. CHILDRENS CHEWABLE ASPIRIN [Concomitant]
     Active Substance: ASPIRIN
  8. PAROXETINE HCL ER [Concomitant]

REACTIONS (13)
  - Fatigue [Recovered/Resolved with Sequelae]
  - Constipation [Not Recovered/Not Resolved]
  - Scoliosis [Not Recovered/Not Resolved]
  - Mobility decreased [Not Recovered/Not Resolved]
  - Diarrhoea [Recovered/Resolved with Sequelae]
  - Hypoaesthesia [Not Recovered/Not Resolved]
  - Benign ear neoplasm [Not Recovered/Not Resolved]
  - Arthralgia [Unknown]
  - Dyspepsia [Not Recovered/Not Resolved]
  - Fall [Recovered/Resolved]
  - Convulsion [Recovered/Resolved]
  - Spinal column stenosis [Not Recovered/Not Resolved]
  - Memory impairment [Not Recovered/Not Resolved]

NARRATIVE: CASE EVENT DATE: 2013
